FAERS Safety Report 18112692 (Version 9)
Quarter: 2021Q3

REPORT INFORMATION
  Report Type: Report from Study
  Country: CN (occurrence: CN)
  Receive Date: 20200805
  Receipt Date: 20210729
  Transmission Date: 20211014
  Serious: Yes (Hospitalization)
  Sender: FDA-Public Use
  Company Number: CN-ROCHE-2651162

PATIENT
  Age: 34 Year
  Sex: Male
  Weight: 85 kg

DRUGS (21)
  1. PLACEBO [Suspect]
     Active Substance: UNSPECIFIED INGREDIENT
     Indication: NON-SMALL CELL LUNG CANCER STAGE IV
     Dosage: DATE OF MOST RECENT PLACEBO PRIOR TO ADVERSE EVENT ONSET: 07/JUL/2020
     Route: 042
     Dates: start: 20200707
  2. TIOPRONIN [Concomitant]
     Active Substance: TIOPRONIN
     Dates: start: 20200819, end: 20200819
  3. PALONOSETRON HYDROCHLORIDE. [Concomitant]
     Active Substance: PALONOSETRON HYDROCHLORIDE
     Dates: start: 20200819, end: 20200820
  4. DEXAMETHASONE ACETATE [Concomitant]
     Active Substance: DEXAMETHASONE ACETATE
     Route: 048
     Dates: start: 20200818, end: 20200820
  5. APREPITANT. [Concomitant]
     Active Substance: APREPITANT
     Dosage: 1 CAPSULE
     Route: 048
     Dates: start: 20200819, end: 20200820
  6. TIOPRONIN [Concomitant]
     Active Substance: TIOPRONIN
     Dates: start: 20200907, end: 20200916
  7. OMEPRAZOLE SODIUM [Concomitant]
     Active Substance: OMEPRAZOLE SODIUM
     Dates: start: 20200708, end: 20200709
  8. TIOPRONIN [Concomitant]
     Active Substance: TIOPRONIN
     Dates: start: 20200729, end: 20200804
  9. BEVACIZUMAB. [Suspect]
     Active Substance: BEVACIZUMAB
     Indication: NON-SMALL CELL LUNG CANCER STAGE IV
     Dosage: DATE OF MOST RECENT DOSE OF BEVACIZUMAB PRIOR TO ADVERSE EVENT ONSET: 07/JUL/2020 (DOSE: 1275 MG)
     Route: 042
     Dates: start: 20200707
  10. PEMETREXED. [Suspect]
     Active Substance: PEMETREXED
     Indication: NON-SMALL CELL LUNG CANCER STAGE IV
     Dosage: DATE OF MOST RECENT DOSE OF PEMETREXED PRIOR TO ADVERSE EVENT ONSET: 08/JUL/2020 (DOSE: 975 MG)
     Route: 042
     Dates: start: 20200708
  11. CARBOPLATIN. [Suspect]
     Active Substance: CARBOPLATIN
     Indication: NON-SMALL CELL LUNG CANCER STAGE IV
     Dosage: DOSE OF MOST RECENT DOSE OF CARBOPLATIN ADMINISTERED PRIOR TO ADVERSE EVENT ONSET: 08/JUL/2020 (DOSE
     Route: 042
     Dates: start: 20200708
  12. OMEPRAZOLE SODIUM [Concomitant]
     Active Substance: OMEPRAZOLE SODIUM
     Dates: start: 20200818, end: 20200821
  13. INOSINE [Concomitant]
     Active Substance: INOSINE
     Dates: start: 20200819, end: 20200820
  14. APREPITANT. [Concomitant]
     Active Substance: APREPITANT
     Route: 048
     Dates: start: 20200708, end: 20200709
  15. SANGUISORBA [Concomitant]
     Dates: start: 20200727, end: 20200906
  16. REDUCED GLUTATHIONE SODIUM [Concomitant]
     Active Substance: GLUTATHIONE
     Dates: start: 20200907, end: 20200910
  17. BICYCLOL [Concomitant]
     Active Substance: BICYCLOL
     Dates: start: 20200907, end: 20200916
  18. TIOPRONIN [Concomitant]
     Active Substance: TIOPRONIN
     Dates: start: 20200708, end: 20200709
  19. SANGUISORBA [Concomitant]
     Indication: COUGH
     Dates: start: 20200721, end: 20200722
  20. PALONOSETRON HYDROCHLORIDE. [Concomitant]
     Active Substance: PALONOSETRON HYDROCHLORIDE
     Dates: start: 20200708, end: 20200708
  21. DEXAMETHASONE ACETATE [Concomitant]
     Active Substance: DEXAMETHASONE ACETATE
     Route: 048
     Dates: start: 20200707, end: 20200709

REACTIONS (1)
  - Abscess [Recovered/Resolved with Sequelae]

NARRATIVE: CASE EVENT DATE: 20200723
